FAERS Safety Report 5816370-3 (Version None)
Quarter: 2008Q3

REPORT INFORMATION
  Report Type: 
  Country: None (occurrence: None)
  Receive Date: 20080721
  Receipt Date: 20080312
  Transmission Date: 20090109
  Serious: No
  Sender: FDA-Public Use
  Company Number: US-BAUSCH-2008BL001163

PATIENT
  Age: 55 Year
  Sex: Female

DRUGS (2)
  1. OPCON-A [Suspect]
     Indication: HYPERSENSITIVITY
     Route: 047
     Dates: start: 20080308, end: 20080308
  2. DRY EYES LUBRICANT EYE DROPS [Concomitant]
     Indication: KERATOCONJUNCTIVITIS SICCA

REACTIONS (3)
  - DRUG HYPERSENSITIVITY [None]
  - MYDRIASIS [None]
  - SKIN LACERATION [None]
